FAERS Safety Report 14901361 (Version 1)
Quarter: 2018Q2

REPORT INFORMATION
  Report Type: Spontaneous
  Country: US (occurrence: US)
  Receive Date: 20180516
  Receipt Date: 20180516
  Transmission Date: 20180711
  Serious: No
  Sender: FDA-Public Use
  Company Number: US-MYLANLABS-2018M1026698

PATIENT
  Sex: Female

DRUGS (3)
  1. ESTRADIOL. [Suspect]
     Active Substance: ESTRADIOL
     Indication: PRODUCT USED FOR UNKNOWN INDICATION
     Dosage: 0.1 MG, QW
     Route: 062
  2. ESTRADIOL. [Suspect]
     Active Substance: ESTRADIOL
     Dosage: UNK
     Route: 062
  3. ESTRADIOL. [Suspect]
     Active Substance: ESTRADIOL
     Dosage: UNK
     Route: 062

REACTIONS (3)
  - Hot flush [Not Recovered/Not Resolved]
  - Product adhesion issue [Unknown]
  - Application site discomfort [Unknown]
